FAERS Safety Report 17661085 (Version 3)
Quarter: 2020Q2

REPORT INFORMATION
  Report Type: Spontaneous
  Country: US (occurrence: US)
  Receive Date: 20200413
  Receipt Date: 20200512
  Transmission Date: 20200713
  Serious: No
  Sender: FDA-Public Use
  Company Number: US-VERTEX PHARMACEUTICALS-2020-002963

PATIENT
  Sex: Male

DRUGS (1)
  1. SYMDEKO [Suspect]
     Active Substance: IVACAFTOR\TEZACAFTOR
     Indication: CYSTIC FIBROSIS
     Dosage: 1 TAB 50MG TEZACAFTOR/75MG IVACAFTOR AND 75MG IVACAFTOR, BID
     Route: 048
     Dates: start: 20200123

REACTIONS (5)
  - Decreased appetite [Not Recovered/Not Resolved]
  - Rash macular [Not Recovered/Not Resolved]
  - Skin irritation [Not Recovered/Not Resolved]
  - Cough [Not Recovered/Not Resolved]
  - Chromaturia [Not Recovered/Not Resolved]

NARRATIVE: CASE EVENT DATE: 2020
